FAERS Safety Report 5108425-6 (Version None)
Quarter: 2006Q3

REPORT INFORMATION
  Report Type: 
  Country: None (occurrence: None)
  Receive Date: 20060915
  Receipt Date: 20060908
  Transmission Date: 20061208
  Serious: Yes (Hospitalization)
  Sender: FDA-Public Use
  Company Number: 163-20785-06090371

PATIENT
  Sex: Female

DRUGS (1)
  1. THALOMID [Suspect]
     Indication: MALIGNANT MELANOMA
     Dosage: 400 MG, 2 IN 1 D, ORAL
     Route: 048
     Dates: start: 20060418

REACTIONS (1)
  - MALAISE [None]
